FAERS Safety Report 18054444 (Version 1)
Quarter: 2020Q3

REPORT INFORMATION
  Report Type: Spontaneous
  Country: US (occurrence: US)
  Receive Date: 20200721
  Receipt Date: 20200721
  Transmission Date: 20201103
  Serious: Yes (Other)
  Sender: FDA-Public Use
  Company Number: None

PATIENT
  Age: 71 Year
  Sex: Female

DRUGS (13)
  1. AMBRISENTAN [Concomitant]
     Active Substance: AMBRISENTAN
  2. WARFARIN [Concomitant]
     Active Substance: WARFARIN
  3. ONDANSETRON [Concomitant]
     Active Substance: ONDANSETRON
  4. FLUOXETINE [Concomitant]
     Active Substance: FLUOXETINE HYDROCHLORIDE
  5. CALCIUM CARBONATE?VIT D3 [Concomitant]
  6. K?TAB [Concomitant]
     Active Substance: POTASSIUM CHLORIDE
  7. FLONASE [Concomitant]
     Active Substance: FLUTICASONE PROPIONATE
  8. OXYGEN SUPPLEMENTAL [Concomitant]
     Active Substance: OXYGEN
  9. ADEMPAS [Suspect]
     Active Substance: RIOCIGUAT
     Indication: PULMONARY ARTERIAL HYPERTENSION
     Route: 048
     Dates: start: 201804
  10. FUROSEMIDE. [Concomitant]
     Active Substance: FUROSEMIDE
  11. PANTOPRAZOLE [Concomitant]
     Active Substance: PANTOPRAZOLE
  12. VITAMIN B12 [Concomitant]
     Active Substance: CYANOCOBALAMIN
  13. ONDANSETRON [Concomitant]
     Active Substance: ONDANSETRON

REACTIONS (3)
  - Inflammation [None]
  - Arthropod bite [None]
  - Cellulitis [None]

NARRATIVE: CASE EVENT DATE: 20200705
